FAERS Safety Report 5276862-5 (Version None)
Quarter: 2007Q1

REPORT INFORMATION
  Report Type: 
  Country: None (occurrence: None)
  Receive Date: 20070327
  Receipt Date: 20070323
  Transmission Date: 20070707
  Serious: Yes (Hospitalization)
  Sender: FDA-Public Use
  Company Number: JP-BRISTOL-MYERS SQUIBB COMPANY-13699194

PATIENT
  Age: 77 Year
  Sex: Female

DRUGS (6)
  1. BARACLUDE [Suspect]
     Indication: HEPATITIS B
     Dosage: INTERRUPTED FROM 11-DEC TO 16-DEC-2006
     Route: 048
     Dates: start: 20061204, end: 20070121
  2. RENIVACE [Suspect]
     Indication: HYPERTENSION
     Route: 048
     Dates: start: 20061109, end: 20070120
  3. ALKERAN [Suspect]
     Indication: MULTIPLE MYELOMA
     Route: 048
     Dates: start: 20061129, end: 20061202
  4. BLOPRESS [Suspect]
     Indication: HYPERTENSION
     Route: 048
     Dates: start: 20061109, end: 20070213
  5. MEDROL [Concomitant]
     Route: 048
     Dates: start: 20061228, end: 20070116
  6. TAKEPRON [Concomitant]
     Dates: start: 20061026, end: 20070316

REACTIONS (5)
  - ANAEMIA [None]
  - BONE MARROW FAILURE [None]
  - PANCYTOPENIA [None]
  - PLATELET COUNT DECREASED [None]
  - WHITE BLOOD CELL COUNT DECREASED [None]
